FAERS Safety Report 11191501 (Version 1)
Quarter: 2015Q2

REPORT INFORMATION
  Report Type: Spontaneous
  Country: US (occurrence: US)
  Receive Date: 20150616
  Receipt Date: 20150616
  Transmission Date: 20150821
  Serious: No
  Sender: FDA-Public Use
  Company Number: US-ASTRAZENECA-2015SE55399

PATIENT
  Sex: Female

DRUGS (1)
  1. FASLODEX [Suspect]
     Active Substance: FULVESTRANT
     Route: 030
     Dates: start: 20150514

REACTIONS (3)
  - Vitreous floaters [Unknown]
  - Retinal haemorrhage [Unknown]
  - Retinal tear [Unknown]

NARRATIVE: CASE EVENT DATE: 20150519
